FAERS Safety Report 20572507 (Version 1)
Quarter: 2022Q1

REPORT INFORMATION
  Report Type: Spontaneous
  Country: US (occurrence: None)
  Receive Date: 20220308
  Receipt Date: 20220308
  Transmission Date: 20220423
  Serious: No
  Sender: FDA-Public Use
  Company Number: None

PATIENT
  Age: 16 Year
  Sex: Female
  Weight: 74.9 kg

DRUGS (1)
  1. NUCALA [Suspect]
     Active Substance: MEPOLIZUMAB
     Indication: Hypereosinophilic syndrome
     Dosage: FREQUENCY : MONTHLY;?
     Route: 058
     Dates: start: 20210507, end: 20211112

REACTIONS (2)
  - Enterobiasis [None]
  - Therapy interrupted [None]

NARRATIVE: CASE EVENT DATE: 20211111
